FAERS Safety Report 4819699-0 (Version None)
Quarter: 2005Q4

REPORT INFORMATION
  Report Type: 
  Country: None (occurrence: None)
  Receive Date: 20051102
  Receipt Date: 20051102
  Transmission Date: 20060501
  Serious: Yes (Other)
  Sender: FDA-Public Use
  Company Number: None

PATIENT
  Age: 77 Year
  Sex: Male
  Weight: 78.1 kg

DRUGS (11)
  1. HALDOL [Suspect]
     Indication: AGITATION
     Dosage: 5MG ONCE
     Dates: start: 20050919, end: 20050919
  2. LAMOTRIGINE [Concomitant]
  3. LEVETIRACETAM [Concomitant]
  4. QUETIAPINE FUMARATE [Concomitant]
  5. SEE IMAGE [Concomitant]
  6. TERAZOSIN [Concomitant]
  7. FELODIPINE [Concomitant]
  8. HYDROCHLOROTHIAZIDE [Concomitant]
  9. ENALAPRIL MALEATE [Concomitant]
  10. BISACODYL [Concomitant]
  11. DOCUSATE [Concomitant]

REACTIONS (1)
  - TARDIVE DYSKINESIA [None]
